FAERS Safety Report 19681192 (Version 1)
Quarter: 2021Q3

REPORT INFORMATION
  Report Type: Spontaneous
  Country: US (occurrence: US)
  Receive Date: 20210810
  Receipt Date: 20210810
  Transmission Date: 20211014
  Serious: No
  Sender: FDA-Public Use
  Company Number: US-UNITED THERAPEUTICS-UNT-2021-015227

PATIENT
  Sex: Female

DRUGS (2)
  1. REMODULIN [Suspect]
     Active Substance: TREPROSTINIL
     Indication: PULMONARY ARTERIAL HYPERTENSION
     Dosage: UNK, CONTINUING
     Route: 058
     Dates: start: 202103
  2. REMODULIN [Suspect]
     Active Substance: TREPROSTINIL
     Dosage: 0.0244 ?G/KG, CONTINUING
     Route: 058
     Dates: start: 2021

REACTIONS (7)
  - Drug dose titration not performed [Unknown]
  - Subcutaneous drug absorption impaired [Unknown]
  - Fatigue [Unknown]
  - Catheter site pain [Unknown]
  - Device placement issue [Unknown]
  - Drug hypersensitivity [Unknown]
  - Fat tissue decreased [Unknown]

NARRATIVE: CASE EVENT DATE: 2021
